FAERS Safety Report 8573108 (Version 2)
Quarter: 2012Q4

REPORT INFORMATION
  Report Type: 
  Country: CH (occurrence: CH)
  Receive Date: 20120522
  Receipt Date: 20120913
  Transmission Date: 20130627
  Serious: Yes (Hospitalization)
  Sender: FDA-Public Use
  Company Number: CH-TEVA-339004ISR

PATIENT
  Age: 47 Year
  Sex: Female

DRUGS (5)
  1. COPAXONE [Suspect]
     Indication: MULTIPLE SCLEROSIS
     Dosage: 20 Milligram Daily;
     Route: 058
     Dates: start: 200906
  2. TRITTICO 100MG [Concomitant]
  3. VENLAFAXINE 75MG SR [Concomitant]
     Dosage: 150 Milligram Daily;
  4. BENERVA 100MG [Concomitant]
  5. BECOZYM FORTE [Concomitant]

REACTIONS (6)
  - Mutism [Recovered/Resolved]
  - Hemiplegia [Recovered/Resolved]
  - Derealisation [Not Recovered/Not Resolved]
  - Hallucination, visual [Not Recovered/Not Resolved]
  - Depersonalisation [Not Recovered/Not Resolved]
  - Panic attack [Not Recovered/Not Resolved]
